FAERS Safety Report 6231361-9 (Version None)
Quarter: 2009Q2

REPORT INFORMATION
  Report Type: 
  Country: None (occurrence: None)
  Receive Date: 20090616
  Receipt Date: 20090603
  Transmission Date: 20091009
  Serious: Yes (Hospitalization)
  Sender: FDA-Public Use
  Company Number: US-ELI_LILLY_AND_COMPANY-US200906000854

PATIENT
  Sex: Female

DRUGS (5)
  1. CYMBALTA [Suspect]
     Indication: HYPOAESTHESIA
     Dosage: 60 MG, 2/D
     Dates: start: 20060101
  2. IBUPROFEN [Concomitant]
  3. ASPIRIN [Concomitant]
  4. METOPROLOL SUCCINATE [Concomitant]
  5. LEXAPRO [Concomitant]

REACTIONS (6)
  - CEREBROVASCULAR ACCIDENT [None]
  - CONFUSIONAL STATE [None]
  - HAEMORRHAGE [None]
  - HYPOAESTHESIA ORAL [None]
  - OFF LABEL USE [None]
  - VISION BLURRED [None]
